FAERS Safety Report 18320464 (Version 1)
Quarter: 2020Q3

REPORT INFORMATION
  Report Type: Report from Study
  Country: DE (occurrence: DE)
  Receive Date: 20200928
  Receipt Date: 20200928
  Transmission Date: 20201105
  Serious: Yes (Hospitalization, Other)
  Sender: FDA-Public Use
  Company Number: DE-GLAXOSMITHKLINE-US2020GSK138877

PATIENT
  Age: 72 Year
  Sex: Female
  Weight: 104 kg

DRUGS (4)
  1. PALLADON [Concomitant]
     Active Substance: HYDROMORPHONE
     Dosage: 8 MG, BID
     Route: 048
     Dates: start: 20200703
  2. PALLADON [Concomitant]
     Active Substance: HYDROMORPHONE
     Indication: PAIN
     Dosage: 20 MG, QD
     Route: 048
     Dates: start: 20200703
  3. BELANTAMAB MAFODOTIN. [Suspect]
     Active Substance: BELANTAMAB MAFODOTIN
     Indication: PLASMA CELL MYELOMA
     Dosage: 250 MG
     Route: 042
     Dates: start: 20200720
  4. ACICLOVIR [Concomitant]
     Active Substance: ACYCLOVIR
     Dosage: 400 MG, BID
     Route: 048
     Dates: start: 20200703

REACTIONS (1)
  - Tumour lysis syndrome [Not Recovered/Not Resolved]

NARRATIVE: CASE EVENT DATE: 20200721
